FAERS Safety Report 8659210 (Version 2)
Quarter: 2012Q4

REPORT INFORMATION
  Report Type: 
  Country: AU (occurrence: AU)
  Receive Date: 20120711
  Receipt Date: 20120829
  Transmission Date: 20130627
  Serious: Yes (Other)
  Sender: FDA-Public Use
  Company Number: PHHY2012AU057197

PATIENT
  Age: 36 Year
  Sex: Male

DRUGS (5)
  1. CLOZARIL [Suspect]
     Indication: SCHIZOPHRENIA
     Dosage: 12.5 mg, UNK
     Dates: start: 20120628
  2. CLOZARIL [Suspect]
     Dosage: 25 mg, QD
  3. CLOZARIL [Suspect]
     Dosage: 75 mg, (25mg mane and 50mg nocte)
  4. ABILIFY [Concomitant]
     Dosage: 20 mg, mane
  5. CLOPENTHIXOL HYDROCHLORIDE [Concomitant]
     Dosage: 500 mg, fortnightly (every two weeks)

REACTIONS (5)
  - Mitral valve disease [Unknown]
  - Tricuspid valve disease [Unknown]
  - Tachycardia [Recovered/Resolved]
  - Haematocrit increased [Unknown]
  - Haemoglobin increased [Unknown]
